FAERS Safety Report 20912812 (Version 1)
Quarter: 2022Q2

REPORT INFORMATION
  Report Type: Spontaneous
  Country: US (occurrence: US)
  Receive Date: 20220603
  Receipt Date: 20220603
  Transmission Date: 20220721
  Serious: No
  Sender: FDA-Public Use
  Company Number: US-INCYTE CORPORATION-2022IN005224

PATIENT

DRUGS (1)
  1. JAKAFI [Suspect]
     Active Substance: RUXOLITINIB
     Indication: Polycythaemia vera
     Dosage: 10 MG IN THE MORNING AND 2 TABLETS OF 10MG AT NIGHT
     Route: 065

REACTIONS (2)
  - Gastric disorder [Unknown]
  - Frustration tolerance decreased [Unknown]
